FAERS Safety Report 8162400-6 (Version None)
Quarter: 2012Q1

REPORT INFORMATION
  Report Type: 
  Country: None (occurrence: None)
  Receive Date: 20120224
  Receipt Date: 20120213
  Transmission Date: 20120608
  Serious: Yes (Hospitalization, Other)
  Sender: FDA-Public Use
  Company Number: US-ELI_LILLY_AND_COMPANY-US201008003143

PATIENT
  Sex: Female

DRUGS (15)
  1. AVELOX [Concomitant]
  2. FLAGYL [Concomitant]
  3. TOPROL-XL [Concomitant]
     Dosage: 50 MG, QD
  4. FORTEO [Suspect]
     Dosage: 20 UG, DAILY (1/D)
  5. OXYGEN [Concomitant]
  6. OMEPRAZOLE [Concomitant]
     Dosage: 20 MG, QD
  7. DILTIAZEM HCL [Concomitant]
     Dosage: 120 MG, QD
  8. WARFARIN SODIUM [Concomitant]
     Dosage: 2.5 MG, QD
  9. CALCIUM [Concomitant]
     Dosage: 1200 MG, UNK
  10. FORTEO [Suspect]
     Indication: OSTEOPOROSIS
     Dosage: 20 UG, DAILY (1/D)
  11. FORTEO [Suspect]
     Dosage: 20 UG, DAILY (1/D)
  12. DIGOXIN [Concomitant]
     Dosage: 0.125 MG, QD
  13. ZANTAC [Concomitant]
     Dosage: 150 MG, QD
  14. MULTI-VITAMIN [Concomitant]
     Dosage: UNK
  15. TRAMADOL HCL [Concomitant]
     Dosage: 50 MG, QD

REACTIONS (10)
  - TREMOR [None]
  - SPEECH DISORDER [None]
  - ANTICOAGULATION DRUG LEVEL ABOVE THERAPEUTIC [None]
  - MUSCLE SPASMS [None]
  - CONFUSIONAL STATE [None]
  - ATRIAL FIBRILLATION [None]
  - HYPOAESTHESIA [None]
  - TRANSIENT ISCHAEMIC ATTACK [None]
  - PNEUMONIA [None]
  - LIGAMENT RUPTURE [None]
